FAERS Safety Report 21968627 (Version 2)
Quarter: 2023Q1

REPORT INFORMATION
  Report Type: Report from Study
  Country: NL (occurrence: NL)
  Receive Date: 20230208
  Receipt Date: 20230216
  Transmission Date: 20230417
  Serious: Yes (Hospitalization)
  Sender: FDA-Public Use
  Company Number: NL-002147023-NVSC2023NL024993

PATIENT
  Sex: Female

DRUGS (3)
  1. OCTREOTIDE ACETATE [Suspect]
     Active Substance: OCTREOTIDE ACETATE
     Indication: Gastric antral vascular ectasia
     Dosage: 1 DOSAGE FORM, Q4W
     Route: 030
  2. OCTREOTIDE ACETATE [Suspect]
     Active Substance: OCTREOTIDE ACETATE
  3. OCTREOTIDE ACETATE [Suspect]
     Active Substance: OCTREOTIDE ACETATE

REACTIONS (3)
  - Fall [Unknown]
  - Cerebral haemorrhage [Unknown]
  - Off label use [Unknown]
